FAERS Safety Report 4292432-X (Version None)
Quarter: 2004Q1

REPORT INFORMATION
  Report Type: 
  Country: None (occurrence: None)
  Receive Date: 20040126
  Receipt Date: 20031121
  Transmission Date: 20041129
  Serious: Yes (Other)
  Sender: FDA-Public Use
  Company Number: US_031199085

PATIENT
  Age: 74 Year
  Sex: Female

DRUGS (3)
  1. FORTEO [Suspect]
     Indication: COMPRESSION FRACTURE
  2. HUMALOG [Suspect]
  3. LANTUS  (INSULINE GLARFGINE) [Concomitant]

REACTIONS (1)
  - LOSS OF CONSCIOUSNESS [None]
